FAERS Safety Report 13150304 (Version 7)
Quarter: 2017Q2

REPORT INFORMATION
  Report Type: Spontaneous
  Country: JP (occurrence: JP)
  Receive Date: 20170125
  Receipt Date: 20170525
  Transmission Date: 20170830
  Serious: Yes (Death, Hospitalization, Other)
  Sender: FDA-Public Use
  Company Number: JP-EISAI MEDICAL RESEARCH-EC-2016-021338

PATIENT
  Age: 47 Year
  Sex: Female

DRUGS (5)
  1. LENVIMA [Suspect]
     Active Substance: LENVATINIB
     Indication: ANAPLASTIC THYROID CANCER
     Route: 048
     Dates: start: 20161005, end: 20161227
  2. LENVIMA [Suspect]
     Active Substance: LENVATINIB
     Route: 048
     Dates: start: 20170110, end: 20170126
  3. BONALON [Suspect]
     Active Substance: ALENDRONATE SODIUM
     Indication: OSTEOPOROSIS PROPHYLAXIS
     Route: 048
     Dates: start: 20130626, end: 20170215
  4. LENVIMA [Suspect]
     Active Substance: LENVATINIB
     Route: 048
     Dates: start: 20170211, end: 20170214
  5. PREDONINE [Concomitant]
     Active Substance: PREDNISOLONE
     Indication: RHEUMATOID ARTHRITIS
     Route: 048
     Dates: start: 20130626, end: 20170215

REACTIONS (22)
  - Malignant neoplasm progression [Not Recovered/Not Resolved]
  - Stomatitis [Not Recovered/Not Resolved]
  - Inferior vena cava syndrome [Unknown]
  - Blood sodium decreased [Recovered/Resolved]
  - Hypertension [Unknown]
  - Hypothyroidism [Not Recovered/Not Resolved]
  - Osteonecrosis of jaw [Not Recovered/Not Resolved]
  - Abdominal pain [Unknown]
  - Blood albumin decreased [Unknown]
  - C-reactive protein increased [Recovering/Resolving]
  - Blood potassium increased [Recovered/Resolved]
  - Vascular rupture [Fatal]
  - Lymphangiosis carcinomatosa [Recovered/Resolved]
  - Metastases to liver [Unknown]
  - Vomiting [Unknown]
  - Metastases to central nervous system [Unknown]
  - Haemoptysis [Not Recovered/Not Resolved]
  - Lung perforation [Not Recovered/Not Resolved]
  - Pleural effusion [Recovered/Resolved]
  - White blood cell count decreased [Unknown]
  - Metastases to gastrointestinal tract [Unknown]
  - Generalised oedema [Unknown]

NARRATIVE: CASE EVENT DATE: 20161006
